FAERS Safety Report 4687213-9 (Version None)
Quarter: 2005Q2

REPORT INFORMATION
  Report Type: 
  Country: None (occurrence: None)
  Receive Date: 20050610
  Receipt Date: 20050526
  Transmission Date: 20051028
  Serious: Yes (Other)
  Sender: FDA-Public Use
  Company Number: PHEH2005US06144

PATIENT
  Age: 73 Year
  Sex: Female
  Weight: 58 kg

DRUGS (6)
  1. DIOVAN [Suspect]
     Dosage: 160 MG, QD
     Route: 048
     Dates: start: 20040520, end: 20050503
  2. LIPITOR [Concomitant]
  3. ZOCOR [Concomitant]
     Indication: BLOOD CHOLESTEROL INCREASED
     Dosage: 20 MG, QD
     Route: 048
     Dates: start: 20040520
  4. EVISTA [Concomitant]
     Indication: OSTEOPOROSIS
     Dosage: 60 UNK, QD
     Route: 048
     Dates: start: 20040520
  5. MIACALCIN [Concomitant]
     Indication: OSTEOPOROSIS
     Dosage: ONCE DAILY
     Route: 045
  6. ZYRTEC [Concomitant]
     Indication: RHINITIS ALLERGIC
     Dosage: 10 UNK, QD PRN
     Route: 048
     Dates: start: 20040520

REACTIONS (4)
  - ANTIDIURETIC HORMONE ABNORMALITY [None]
  - ASTHENIA [None]
  - HYPONATRAEMIA [None]
  - PNEUMONIA [None]
